FAERS Safety Report 11453456 (Version 2)
Quarter: 2015Q3

REPORT INFORMATION
  Report Type: Spontaneous
  Country: US (occurrence: US)
  Receive Date: 20150831
  Receipt Date: 20150903
  Transmission Date: 20151125
  Serious: No
  Sender: FDA-Public Use
  Company Number: US-ELI_LILLY_AND_COMPANY-US200911003941

PATIENT
  Sex: Male

DRUGS (9)
  1. LIPITOR [Concomitant]
     Active Substance: ATORVASTATIN CALCIUM
  2. FLOMAX [Concomitant]
     Active Substance: TAMSULOSIN HYDROCHLORIDE
  3. HUMALOG [Suspect]
     Active Substance: INSULIN LISPRO
     Indication: TYPE 2 DIABETES MELLITUS
     Dosage: UNK, UNK
  4. LANTUS SOLOSTAR [Concomitant]
     Active Substance: INSULIN GLARGINE
  5. FINASTERIDE. [Concomitant]
     Active Substance: FINASTERIDE
  6. SYMLIN [Concomitant]
     Active Substance: PRAMLINTIDE ACETATE
  7. CYMBALTA [Suspect]
     Active Substance: DULOXETINE HYDROCHLORIDE
     Indication: DIABETIC NEUROPATHY
     Dosage: 30 MG, 2/D
  8. CYMBALTA [Suspect]
     Active Substance: DULOXETINE HYDROCHLORIDE
     Dosage: 60 MG, 2/D
     Dates: end: 200911
  9. ZETIA [Concomitant]
     Active Substance: EZETIMIBE

REACTIONS (9)
  - Diabetic neuropathy [Unknown]
  - Anxiety [Not Recovered/Not Resolved]
  - Hyperhidrosis [Unknown]
  - Apathy [Unknown]
  - Dizziness [Not Recovered/Not Resolved]
  - Drug dispensing error [Recovered/Resolved]
  - Blood glucose increased [Unknown]
  - Hypersomnia [Not Recovered/Not Resolved]
  - Drug withdrawal syndrome [Not Recovered/Not Resolved]

NARRATIVE: CASE EVENT DATE: 2009
